FAERS Safety Report 15576258 (Version 1)
Quarter: 2018Q4

REPORT INFORMATION
  Report Type: Spontaneous
  Country: BR (occurrence: BR)
  Receive Date: 20181101
  Receipt Date: 20181101
  Transmission Date: 20190205
  Serious: Yes (Other)
  Sender: FDA-Public Use
  Company Number: BR-BIOMARINAP-BR-2018-120498

PATIENT
  Age: 10 Year
  Sex: Female

DRUGS (2)
  1. BROMOPRIDA [Concomitant]
     Indication: PREMEDICATION
  2. VIMIZIM [Suspect]
     Active Substance: ELOSULFASE ALFA
     Indication: MUCOPOLYSACCHARIDOSIS IV
     Dosage: UNK
     Route: 042
     Dates: start: 20150325

REACTIONS (7)
  - Pruritus [Not Recovered/Not Resolved]
  - Influenza [Recovering/Resolving]
  - Oropharyngeal pain [Unknown]
  - Tremor [Not Recovered/Not Resolved]
  - Hypersensitivity [Not Recovered/Not Resolved]
  - Eyelid oedema [Not Recovered/Not Resolved]
  - Hyperaemia [Not Recovered/Not Resolved]

NARRATIVE: CASE EVENT DATE: 20181024
